FAERS Safety Report 8132436-X (Version None)
Quarter: 2012Q1

REPORT INFORMATION
  Report Type: 
  Country: None (occurrence: None)
  Receive Date: 20120208
  Receipt Date: 20120203
  Transmission Date: 20120608
  Serious: Yes (Death, Hospitalization)
  Sender: FDA-Public Use
  Company Number: 2011SP053960

PATIENT
  Age: 65 Year
  Sex: Female

DRUGS (13)
  1. D VITAMIN [Concomitant]
  2. TOPAMAX [Concomitant]
  3. ZYPREXA [Concomitant]
  4. SOLIAN [Concomitant]
  5. CISORDINOL ACUTARD [Concomitant]
  6. ORFIRAL [Concomitant]
  7. UNIKALK FORTE WITH D-VITAMIN [Concomitant]
  8. ZYPREXA [Concomitant]
  9. SYCREST (ASENAPINE (05706901) [Suspect]
     Indication: PRODUCT USED FOR UNKNOWN INDICATION
     Dosage: 10;20 MG, QD
     Dates: start: 20111111, end: 20111111
  10. SYCREST (ASENAPINE (05706901) [Suspect]
     Indication: PRODUCT USED FOR UNKNOWN INDICATION
     Dosage: 10;20 MG, QD
     Dates: start: 20111113, end: 20111114
  11. SEROQUEL XR [Concomitant]
  12. SEROQUEL [Concomitant]
  13. LAMICTAL [Concomitant]

REACTIONS (16)
  - SCREAMING [None]
  - SOMNOLENCE [None]
  - DISEASE PROGRESSION [None]
  - AGITATION [None]
  - RESTLESSNESS [None]
  - BLOOD CREATININE INCREASED [None]
  - CARDIAC ARREST [None]
  - INSOMNIA [None]
  - ILEUS [None]
  - CIRCULATORY COLLAPSE [None]
  - BILIARY TRACT DISORDER [None]
  - ABDOMINAL DISTENSION [None]
  - MANIA [None]
  - LOGORRHOEA [None]
  - FEELING JITTERY [None]
  - RENAL FAILURE [None]
